FAERS Safety Report 11137544 (Version 3)
Quarter: 2015Q3

REPORT INFORMATION
  Report Type: Spontaneous
  Country: US (occurrence: US)
  Receive Date: 20150526
  Receipt Date: 20150707
  Transmission Date: 20151125
  Serious: Yes (Other)
  Sender: FDA-Public Use
  Company Number: US-OTSUKA-2015_000446

PATIENT
  Sex: Female
  Weight: 104.76 kg

DRUGS (12)
  1. LORATADINE. [Concomitant]
     Active Substance: LORATADINE
     Indication: ASTHMA
     Dosage: UNK
     Route: 065
  2. ORTHO TRI CYCLEN LO [Concomitant]
     Active Substance: ETHINYL ESTRADIOL\NORGESTIMATE
     Indication: MENSTRUATION IRREGULAR
     Dosage: UNK
     Route: 065
  3. OXCARBAZEPINE. [Concomitant]
     Active Substance: OXCARBAZEPINE
     Indication: MENTAL DISORDER
     Dosage: 300 MG, 2 AT A TIME, TWICE A DAY, DAILY
     Route: 048
  4. ABILIFY MAINTENA [Suspect]
     Active Substance: ARIPIPRAZOLE
     Indication: MENTAL DISORDER
     Dosage: 300 MG, MONTHLY
     Route: 030
  5. BENZTROPINE [Concomitant]
     Active Substance: BENZTROPINE
     Indication: MOVEMENT DISORDER
     Dosage: 1 MG, ONCE IN THE MORNING AND ONCE IN THE EVENING
     Route: 065
  6. ARIPIPRAZOLE. [Suspect]
     Active Substance: ARIPIPRAZOLE
     Indication: MENTAL DISORDER
     Dosage: UNK
     Route: 048
  7. AMITRIPTYLINE [Suspect]
     Active Substance: AMITRIPTYLINE
     Indication: PRODUCT USED FOR UNKNOWN INDICATION
     Dosage: 50 MG, UNK
     Route: 048
  8. LIPITOR [Concomitant]
     Active Substance: ATORVASTATIN CALCIUM
     Indication: PRODUCT USED FOR UNKNOWN INDICATION
     Dosage: UNK
     Route: 065
  9. BENZTROPINE [Concomitant]
     Active Substance: BENZTROPINE
     Indication: SEIZURE
  10. AMITRIPTYLINE [Suspect]
     Active Substance: AMITRIPTYLINE
     Dosage: 25 MG, UNK
     Route: 048
  11. SINGULAIR [Concomitant]
     Active Substance: MONTELUKAST SODIUM
     Indication: ASTHMA
     Dosage: 10 MG, ONCE A DAY
     Route: 048
  12. QVAR [Concomitant]
     Active Substance: BECLOMETHASONE DIPROPIONATE
     Indication: PRODUCT USED FOR UNKNOWN INDICATION
     Dosage: 80 MCG, 1 PUFF IN THE MORNING AND 1 PUFF IN THE EVENING
     Route: 048

REACTIONS (9)
  - Intentional product use issue [Unknown]
  - Aggression [Unknown]
  - Emotional disorder [Unknown]
  - Loss of consciousness [Unknown]
  - Drug ineffective [Unknown]
  - Movement disorder [Unknown]
  - Weight increased [Unknown]
  - Self injurious behaviour [Unknown]
  - Off label use [Unknown]
